FAERS Safety Report 10100852 (Version 1)
Quarter: 2014Q2

REPORT INFORMATION
  Report Type: Spontaneous
  Country: JP (occurrence: JP)
  Receive Date: 20140423
  Receipt Date: 20140423
  Transmission Date: 20141212
  Serious: Yes (Death, Hospitalization)
  Sender: FDA-Public Use
  Company Number: JP-ALLERGAN-1408194US

PATIENT
  Age: 59 Year
  Sex: Male

DRUGS (2)
  1. BOTOX [Suspect]
     Indication: TORTICOLLIS
     Dosage: UNK, SINGLE
     Route: 030
     Dates: start: 20130222, end: 20130222
  2. BOTOX [Suspect]
     Route: 030
     Dates: start: 20131128, end: 20131128

REACTIONS (3)
  - Respiratory failure [Fatal]
  - Spinal osteoarthritis [Fatal]
  - Myelopathy [Fatal]
